FAERS Safety Report 7523246-2 (Version None)
Quarter: 2011Q2

REPORT INFORMATION
  Report Type: 
  Country: None (occurrence: None)
  Receive Date: 20110603
  Receipt Date: 20110601
  Transmission Date: 20111010
  Serious: Yes (Hospitalization)
  Sender: FDA-Public Use
  Company Number: US-BRISTOL-MYERS SQUIBB COMPANY-15796790

PATIENT
  Age: 60 Year
  Sex: Male

DRUGS (4)
  1. LISINOPRIL [Concomitant]
     Dates: start: 20030101
  2. OMEPRAZOLE [Concomitant]
     Dates: start: 20030101
  3. DECADRON [Concomitant]
     Dates: start: 20110301
  4. IPILIMUMAB [Suspect]
     Indication: MALIGNANT MELANOMA
     Route: 042
     Dates: start: 20110504, end: 20110525

REACTIONS (1)
  - HEADACHE [None]
